FAERS Safety Report 7430247-1 (Version None)
Quarter: 2011Q2

REPORT INFORMATION
  Report Type: 
  Country: None (occurrence: None)
  Receive Date: 20110421
  Receipt Date: 20101228
  Transmission Date: 20111010
  Serious: No
  Sender: FDA-Public Use
  Company Number: US-ASTRAZENECA-2010SE61292

PATIENT
  Age: 69 Year
  Sex: Female

DRUGS (2)
  1. AMLODIPINE [Concomitant]
  2. METOPROLOL SUCCINATE [Suspect]
     Dosage: 100 MG AND 25 MG IN THE MORNING
     Route: 048

REACTIONS (1)
  - PRODUCT SUBSTITUTION ISSUE [None]
